FAERS Safety Report 19747191 (Version 2)
Quarter: 2022Q2

REPORT INFORMATION
  Report Type: Spontaneous
  Country: GB (occurrence: GB)
  Receive Date: 20210826
  Receipt Date: 20220407
  Transmission Date: 20220720
  Serious: Yes (Other)
  Sender: FDA-Public Use
  Company Number: None

PATIENT
  Age: 50 Year
  Sex: Female

DRUGS (5)
  1. SUMATRIPTAN [Suspect]
     Active Substance: SUMATRIPTAN
     Indication: Ill-defined disorder
     Route: 048
     Dates: start: 20170531, end: 20170531
  2. SUMATRIPTAN [Suspect]
     Active Substance: SUMATRIPTAN
     Indication: Headache
  3. SUMATRIPTAN [Suspect]
     Active Substance: SUMATRIPTAN
     Indication: Hypoaesthesia
  4. SUMATRIPTAN [Suspect]
     Active Substance: SUMATRIPTAN
     Indication: Headache
  5. SUMATRIPTAN [Suspect]
     Active Substance: SUMATRIPTAN
     Indication: Visual impairment

REACTIONS (2)
  - Headache [Recovered/Resolved]
  - Product prescribing error [Unknown]
